FAERS Safety Report 21847983 (Version 1)
Quarter: 2023Q1

REPORT INFORMATION
  Report Type: Spontaneous
  Country: GB (occurrence: GB)
  Receive Date: 20230111
  Receipt Date: 20230111
  Transmission Date: 20230418
  Serious: Yes (Other)
  Sender: FDA-Public Use
  Company Number: GB-drreddys-LIT/UKI/23/0159585

PATIENT
  Age: 46 Year
  Sex: Male

DRUGS (2)
  1. CAPECITABINE [Suspect]
     Active Substance: CAPECITABINE
     Indication: Pseudomyxoma peritonei
     Dosage: 3 CYCLES
  2. OXALIPLATIN [Suspect]
     Active Substance: OXALIPLATIN
     Indication: Pseudomyxoma peritonei
     Dosage: 3 CYCLES

REACTIONS (3)
  - Pseudomyxoma peritonei [Recovering/Resolving]
  - Condition aggravated [Recovering/Resolving]
  - Drug ineffective for unapproved indication [Unknown]
